FAERS Safety Report 7958121-2 (Version None)
Quarter: 2011Q4

REPORT INFORMATION
  Report Type: 
  Country: None (occurrence: None)
  Receive Date: 20111205
  Receipt Date: 20110930
  Transmission Date: 20120403
  Serious: Yes (Hospitalization)
  Sender: FDA-Public Use
  Company Number: FR-BAYER-2011-115235

PATIENT
  Age: 62 Year
  Sex: Male
  Weight: 75 kg

DRUGS (5)
  1. ACETAMINOPHEN W/ PROPOXYPHENE HCL [Suspect]
     Indication: BACK PAIN
     Dosage: 1 DF,2 IN 1 DAY
     Dates: start: 20110816, end: 20110819
  2. MIOREL [Suspect]
     Dosage: UNK
     Route: 048
     Dates: start: 20110816, end: 20110819
  3. ASPEGIC 325 [Concomitant]
     Indication: PORTAL VEIN THROMBOSIS
     Dosage: UNK
     Dates: start: 20110101
  4. NAPROXEN SODIUM [Suspect]
     Indication: BACK PAIN
     Dosage: (1 DF,2 IN 1 D)
     Dates: start: 20110816, end: 20110819
  5. OMEPRAZOLE [Suspect]
     Indication: BACK PAIN
     Dosage: 1 DF,1 IN 1 DAY
     Route: 048
     Dates: start: 20110816, end: 20110819

REACTIONS (4)
  - BLOOD PRESSURE INCREASED [None]
  - INCOHERENT [None]
  - DISORIENTATION [None]
  - SPEECH DISORDER [None]
